FAERS Safety Report 6722844-3 (Version None)
Quarter: 2010Q2

REPORT INFORMATION
  Report Type: 
  Country: None (occurrence: None)
  Receive Date: 20100512
  Receipt Date: 20100512
  Transmission Date: 20101027
  Serious: Yes (Other)
  Sender: FDA-Public Use
  Company Number: None

PATIENT
  Age: 76 Year
  Sex: Female
  Weight: 60.782 kg

DRUGS (2)
  1. VANCOMYCIN [Suspect]
     Indication: CARDIAC OPERATION
     Dosage: IV BOLUS
     Route: 040
     Dates: start: 20091222, end: 20091223
  2. VANCOMYCIN [Suspect]
     Indication: PYREXIA
     Dosage: IV BOLUS
     Route: 040
     Dates: start: 20091222, end: 20091223

REACTIONS (2)
  - HYPOACUSIS [None]
  - TINNITUS [None]
